FAERS Safety Report 18699458 (Version 5)
Quarter: 2021Q1

REPORT INFORMATION
  Report Type: Spontaneous
  Country: US (occurrence: US)
  Receive Date: 20210105
  Receipt Date: 20210319
  Transmission Date: 20210419
  Serious: No
  Sender: FDA-Public Use
  Company Number: NVSC2020US344130

PATIENT
  Sex: Female

DRUGS (2)
  1. XIIDRA [Suspect]
     Active Substance: LIFITEGRAST
     Indication: PRODUCT USED FOR UNKNOWN INDICATION
     Dosage: 5 %, BID
     Route: 065
     Dates: start: 20201214
  2. XIIDRA [Suspect]
     Active Substance: LIFITEGRAST
     Dosage: 1 DRP, BID
     Route: 065

REACTIONS (5)
  - Dacryostenosis acquired [Unknown]
  - Eye pain [Unknown]
  - Migraine [Unknown]
  - Eye swelling [Unknown]
  - Sinusitis [Unknown]
